FAERS Safety Report 16729914 (Version 1)
Quarter: 2019Q3

REPORT INFORMATION
  Report Type: Spontaneous
  Country: US (occurrence: US)
  Receive Date: 20190705
  Receipt Date: 20190705
  Transmission Date: 20191005
  Serious: Yes (Hospitalization)
  Sender: FDA-Public Use
  Company Number: None

PATIENT
  Age: 73 Year
  Sex: Male

DRUGS (1)
  1. ADEMPAS [Suspect]
     Active Substance: RIOCIGUAT
     Indication: PULMONARY HYPERTENSION
     Route: 048
     Dates: start: 201902

REACTIONS (4)
  - Acute respiratory failure [None]
  - Upper respiratory tract infection [None]
  - Respiratory failure [None]
  - Asthma [None]

NARRATIVE: CASE EVENT DATE: 20190625
